FAERS Safety Report 6845027-5 (Version None)
Quarter: 2010Q2

REPORT INFORMATION
  Report Type: 
  Country: None (occurrence: None)
  Receive Date: 20100629
  Receipt Date: 20100312
  Transmission Date: 20101027
  Serious: No
  Sender: FDA-Public Use
  Company Number: US-WYE-H14113810

PATIENT
  Age: 58 Year
  Sex: Female
  Weight: 92.62 kg

DRUGS (9)
  1. PRISTIQ [Suspect]
     Indication: BIPOLAR DISORDER
     Dosage: 50 MG 1X PER 1 DAY, ORAL
     Route: 048
     Dates: start: 20100201
  2. ASPIRIN [Concomitant]
  3. SEROQUEL [Concomitant]
  4. KLONOPIN [Concomitant]
  5. TRAMADOL HCL [Concomitant]
  6. ZETIA [Concomitant]
  7. NEXIUM [Concomitant]
  8. PROVIGIL [Concomitant]
  9. ABILIFY (ARIPIPRAZOLE)C [Concomitant]

REACTIONS (3)
  - DIARRHOEA [None]
  - NAUSEA [None]
  - WEIGHT DECREASED [None]
